FAERS Safety Report 16311622 (Version 13)
Quarter: 2019Q4

REPORT INFORMATION
  Report Type: Report from Study
  Country: None (occurrence: PL)
  Receive Date: 20190514
  Receipt Date: 20191115
  Transmission Date: 20200122
  Serious: Yes (Hospitalization)
  Sender: FDA-Public Use
  Company Number: PL-ABBVIE-19P-129-2782608-00

PATIENT
  Age: 65 Year
  Sex: Male

DRUGS (12)
  1. COBIMETINIB. [Suspect]
     Active Substance: COBIMETINIB
     Indication: PLASMA CELL MYELOMA
     Dosage: MOST RECENT DOSE (800MG) PRIOR TO THROMBOCYTOPENIA 03//MAR/19
     Route: 048
     Dates: start: 20190211
  2. COBIMETINIB. [Suspect]
     Active Substance: COBIMETINIB
     Dosage: MOST RECENT DOSE (40 MG) PRIOR TO ANEMIA 28/APR/2019.
     Route: 048
  3. COBIMETINIB. [Suspect]
     Active Substance: COBIMETINIB
     Dosage: MOST RECENT DOSE (800MG) PRIOR TO THROMBOCYTOPENIA 28/APR/2019.
     Route: 048
  4. ROZACOM [Concomitant]
     Indication: GLAUCOMA
     Route: 047
  5. BISOCARD [Concomitant]
     Active Substance: BISOPROLOL
     Indication: HYPERTENSION
     Route: 048
     Dates: start: 2004
  6. VENETOCLAX. [Suspect]
     Active Substance: VENETOCLAX
     Dosage: MOST RECENT DOSE (800MG) PRIOR TO ANEMIA 05/MAY/2019
     Route: 048
  7. VENETOCLAX. [Suspect]
     Active Substance: VENETOCLAX
     Dosage: MOST RECENT DOSE (600MG) PRIOR TO THIRD EPISODE OF THROMBOCYTOPENIA 23/JUN/2019
     Route: 048
  8. VENETOCLAX. [Suspect]
     Active Substance: VENETOCLAX
     Indication: PLASMA CELL MYELOMA
     Dosage: MOST RECENT DOSE (40MG) PRIOR TO ONSET OF AE THROMBOCYTOPENIA 10/MAR/2019
     Route: 048
     Dates: start: 20190211
  9. VENETOCLAX. [Suspect]
     Active Substance: VENETOCLAX
     Dosage: MOST RECENT DOSE (40MG) PRIOR TO ONSET OF THROMBOCYTOPENIA AND ANEMIA 05/MAY/2019
     Route: 048
  10. VENETOCLAX. [Suspect]
     Active Substance: VENETOCLAX
     Dosage: MOST RECENT DOSE (600MG) PRIOR TO SECOND EPISODE OF THROMBOCYTOPENIA 09/JUN/2019
     Route: 048
  11. COBIMETINIB. [Suspect]
     Active Substance: COBIMETINIB
     Dosage: MOST RECENT DOSE (40MG) PRIOR TO 2ND EPISODE OF THROMBOCYTOPENIA 09/JUN/2019.
     Route: 048
  12. METFORMAX [Concomitant]
     Active Substance: METFORMIN HYDROCHLORIDE
     Indication: DIABETES MELLITUS
     Route: 048
     Dates: start: 2012

REACTIONS (3)
  - Anaemia [Recovered/Resolved]
  - Thrombocytopenia [Not Recovered/Not Resolved]
  - Anaemia [Not Recovered/Not Resolved]

NARRATIVE: CASE EVENT DATE: 20190311
